FAERS Safety Report 9926138 (Version 1)
Quarter: 2014Q1

REPORT INFORMATION
  Report Type: Spontaneous
  Country: DE (occurrence: DE)
  Receive Date: 20140226
  Receipt Date: 20140226
  Transmission Date: 20141002
  Serious: Yes (Other)
  Sender: FDA-Public Use
  Company Number: DE-MYLANLABS-2014S1003287

PATIENT
  Age: 37 Year
  Sex: Female

DRUGS (3)
  1. CLINDAMYCIN [Suspect]
     Indication: TENOSYNOVITIS
     Route: 048
     Dates: start: 20140201, end: 20140205
  2. PARACETAMOL [Suspect]
     Indication: PAIN
     Dosage: 1-2 G
     Route: 048
     Dates: start: 20140201, end: 20140206
  3. GILENYA [Suspect]
     Indication: MULTIPLE SCLEROSIS
     Route: 048
     Dates: start: 20140114

REACTIONS (3)
  - Transaminases increased [Not Recovered/Not Resolved]
  - Leukopenia [Not Recovered/Not Resolved]
  - Blood potassium increased [Not Recovered/Not Resolved]
